FAERS Safety Report 10185669 (Version 2)
Quarter: 2014Q2

REPORT INFORMATION
  Report Type: Report from Study
  Country: US (occurrence: US)
  Receive Date: 20140521
  Receipt Date: 20140529
  Transmission Date: 20141212
  Serious: Yes (Death, Hospitalization)
  Sender: FDA-Public Use
  Company Number: US-ROCHE-1400819

PATIENT
  Sex: Female

DRUGS (2)
  1. XELODA [Suspect]
     Indication: BREAST CANCER
     Dosage: 7 DAYS ON AND 7 DAYS OFF
     Route: 048
  2. BEVACIZUMAB [Suspect]
     Indication: BREAST CANCER
     Route: 065

REACTIONS (2)
  - Death [Fatal]
  - Cardiac failure congestive [Unknown]
